FAERS Safety Report 8437219-9 (Version None)
Quarter: 2012Q2

REPORT INFORMATION
  Report Type: 
  Country: None (occurrence: None)
  Receive Date: 20120614
  Receipt Date: 20120320
  Transmission Date: 20120825
  Serious: No
  Sender: FDA-Public Use
  Company Number: US-AMGEN-USASP2012017888

PATIENT
  Age: 82 Year
  Sex: Female

DRUGS (6)
  1. SIMVASTATIN [Concomitant]
     Dosage: 1 MG, QD
  2. LUMIGAN [Concomitant]
     Dosage: UNK
  3. LEVOBUNOLOL HCL [Concomitant]
     Dosage: UNK
  4. PROLIA [Suspect]
     Indication: OSTEOPOROSIS POSTMENOPAUSAL
     Dosage: 60 MG, Q6MO
     Dates: start: 20111222
  5. DIPYRIDAMOLE [Concomitant]
     Dosage: 2 MG, QD
  6. LEVOTHYROXINE SODIUM [Concomitant]
     Dosage: 1 MUG, QD

REACTIONS (1)
  - PAIN IN JAW [None]
